FAERS Safety Report 23983866 (Version 1)
Quarter: 2024Q2

REPORT INFORMATION
  Report Type: Spontaneous
  Country: US (occurrence: US)
  Receive Date: 20240618
  Receipt Date: 20240618
  Transmission Date: 20240716
  Serious: No
  Sender: FDA-Public Use
  Company Number: US-AUROBINDO-AUR-APL-2023-053275

PATIENT
  Age: 69 Year
  Sex: Male
  Weight: 69 kg

DRUGS (1)
  1. TAMSULOSIN HYDROCHLORIDE [Suspect]
     Active Substance: TAMSULOSIN HYDROCHLORIDE
     Indication: Benign prostatic hyperplasia
     Dosage: UNK, ONCE A DAY (02 YEARS AGO)
     Route: 065

REACTIONS (5)
  - Rhinorrhoea [Not Recovered/Not Resolved]
  - Ejaculation disorder [Not Recovered/Not Resolved]
  - Vision blurred [Not Recovered/Not Resolved]
  - Psychiatric symptom [Not Recovered/Not Resolved]
  - Drug ineffective [Not Recovered/Not Resolved]
